FAERS Safety Report 8143677-X (Version None)
Quarter: 2012Q1

REPORT INFORMATION
  Report Type: 
  Country: None (occurrence: None)
  Receive Date: 20120103
  Receipt Date: 20111007
  Transmission Date: 20120608
  Serious: No
  Sender: FDA-Public Use
  Company Number: AE-2011-002128

PATIENT
  Age: 60 Year
  Sex: Male
  Weight: 83.0083 kg

DRUGS (8)
  1. SINGULAIR [Concomitant]
  2. LEXAPRO [Concomitant]
  3. LAMICTAL [Concomitant]
  4. RIBAVIRIN [Concomitant]
  5. ABILIFY [Concomitant]
  6. TRAZODONE HCL [Concomitant]
  7. INCIVEK [Suspect]
     Dosage: 2250 MG (750 MG, 3 IN 1 D)
     Dates: start: 20110824
  8. PEGASYS [Concomitant]

REACTIONS (2)
  - DIZZINESS POSTURAL [None]
  - DYSPNOEA [None]
